FAERS Safety Report 7997748-9 (Version None)
Quarter: 2011Q4

REPORT INFORMATION
  Report Type: 
  Country: None (occurrence: None)
  Receive Date: 20111221
  Receipt Date: 20111216
  Transmission Date: 20120403
  Serious: Yes (Hospitalization)
  Sender: FDA-Public Use
  Company Number: US-JNJFOC-20111208018

PATIENT
  Age: 32 Year
  Sex: Male
  Weight: 96.62 kg

DRUGS (4)
  1. BENADRYL [Suspect]
     Indication: URTICARIA
     Route: 048
     Dates: start: 20111213, end: 20111213
  2. ASPIRIN [Concomitant]
     Indication: BLOOD PRESSURE
     Route: 048
  3. BENADRYL [Suspect]
     Indication: HYPERSENSITIVITY
     Route: 048
     Dates: start: 20111213, end: 20111213
  4. HYDROCHLOROTHIAZIDE [Concomitant]
     Indication: HYPERTENSION
     Dosage: COUPLE YEARS
     Route: 048

REACTIONS (1)
  - SWELLING [None]
